FAERS Safety Report 5382122-4 (Version None)
Quarter: 2007Q3

REPORT INFORMATION
  Report Type: 
  Country: None (occurrence: None)
  Receive Date: 20070705
  Receipt Date: 20070618
  Transmission Date: 20080115
  Serious: Yes (Hospitalization)
  Sender: FDA-Public Use
  Company Number: 2007BI002115

PATIENT
  Age: 51 Year
  Sex: Male

DRUGS (2)
  1. NATALIZUMAB [Suspect]
     Indication: MULTIPLE SCLEROSIS
     Dosage: IV
     Route: 042
     Dates: start: 20050101, end: 20050201
  2. NATALIZUMAB [Suspect]
     Indication: MULTIPLE SCLEROSIS
     Dosage: 300 MG; QM; IV
     Route: 042
     Dates: start: 20061221, end: 20070122

REACTIONS (10)
  - BLOOD PRESSURE DECREASED [None]
  - BURNING SENSATION [None]
  - DYSPNOEA [None]
  - FATIGUE [None]
  - HYPERHIDROSIS [None]
  - HYPERSENSITIVITY [None]
  - INFLUENZA [None]
  - MUSCLE SPASMS [None]
  - PRURITUS [None]
  - RASH [None]
